FAERS Safety Report 25396169 (Version 1)
Quarter: 2025Q2

REPORT INFORMATION
  Report Type: Spontaneous
  Country: CN (occurrence: CN)
  Receive Date: 20250604
  Receipt Date: 20250604
  Transmission Date: 20250716
  Serious: Yes (Death, Other)
  Sender: STRIDES
  Company Number: CN-STRIDES ARCOLAB LIMITED-2025SP006817

PATIENT
  Age: 58 Year
  Sex: Male

DRUGS (3)
  1. MYCOPHENOLATE MOFETIL [Suspect]
     Active Substance: MYCOPHENOLATE MOFETIL
     Indication: Immune-mediated cholestasis
     Route: 065
  2. URSODIOL [Suspect]
     Active Substance: URSODIOL
     Indication: Immune-mediated cholestasis
     Route: 065
  3. METHYLPREDNISOLONE [Suspect]
     Active Substance: METHYLPREDNISOLONE
     Indication: Immune-mediated cholestasis
     Route: 065

REACTIONS (1)
  - Drug ineffective for unapproved indication [Fatal]
